FAERS Safety Report 10530407 (Version 1)
Quarter: 2014Q4

REPORT INFORMATION
  Report Type: Spontaneous
  Country: US (occurrence: US)
  Receive Date: 20141021
  Receipt Date: 20141021
  Transmission Date: 20150528
  Serious: No
  Sender: FDA-Public Use
  Company Number: US-B.I. PHARMACEUTICALS,INC./RIDGEFIELD-2014-BI-48379BP

PATIENT
  Sex: Male
  Weight: 104.33 kg

DRUGS (4)
  1. SPIRIVA [Suspect]
     Active Substance: TIOTROPIUM BROMIDE MONOHYDRATE
     Indication: EMPHYSEMA
     Dosage: 18 MCG
     Route: 055
     Dates: start: 2013
  2. SIMVASTATIN. [Concomitant]
     Active Substance: SIMVASTATIN
     Indication: BLOOD CHOLESTEROL INCREASED
     Dosage: 20 MG
     Route: 048
     Dates: start: 1974
  3. OMEPRAZOLE. [Concomitant]
     Active Substance: OMEPRAZOLE
     Indication: HYPERCHLORHYDRIA
     Dosage: 20 MG
     Route: 048
     Dates: start: 2009
  4. BISO FUM/HCT [Concomitant]
     Indication: HYPERTENSION
     Dosage: DOSE PER APPLICATION AND DAILY DOSE: 10/6.25 MG
     Route: 048
     Dates: start: 1974

REACTIONS (4)
  - Dyspnoea [Not Recovered/Not Resolved]
  - Paranasal sinus hypersecretion [Recovered/Resolved]
  - Oropharyngeal pain [Recovered/Resolved]
  - Lip exfoliation [Recovered/Resolved]

NARRATIVE: CASE EVENT DATE: 2013
